FAERS Safety Report 5745267-2 (Version None)
Quarter: 2008Q2

REPORT INFORMATION
  Report Type: 
  Country: None (occurrence: None)
  Receive Date: 20080521
  Receipt Date: 20080515
  Transmission Date: 20081010
  Serious: Yes (Hospitalization)
  Sender: FDA-Public Use
  Company Number: US-JNJFOC-20080406806

PATIENT
  Sex: Female
  Weight: 62.14 kg

DRUGS (6)
  1. HALDOL [Suspect]
     Indication: ANXIETY
     Route: 030
  2. ATIVAN [Interacting]
     Indication: ANXIETY
     Route: 048
  3. LEXAPRO [Concomitant]
     Indication: MULTIPLE SCLEROSIS
     Route: 048
  4. INTERFERON [Concomitant]
     Indication: MULTIPLE SCLEROSIS
     Route: 030
  5. MAXALT [Concomitant]
     Indication: HEADACHE
     Route: 048
  6. PSORIASIS CREAM [Concomitant]
     Indication: PSORIASIS
     Route: 061

REACTIONS (8)
  - BLINDNESS [None]
  - DEAFNESS [None]
  - DRUG INTERACTION [None]
  - FEELING ABNORMAL [None]
  - MEMORY IMPAIRMENT [None]
  - MOVEMENT DISORDER [None]
  - SPEECH DISORDER [None]
  - THINKING ABNORMAL [None]
